FAERS Safety Report 5008818-1 (Version None)
Quarter: 2006Q2

REPORT INFORMATION
  Report Type: 
  Country: None (occurrence: None)
  Receive Date: 20060404
  Receipt Date: 20051118
  Transmission Date: 20061013
  Serious: No
  Sender: FDA-Public Use
  Company Number: USA0511112456

PATIENT
  Sex: Female
  Weight: 61.2 kg

DRUGS (5)
  1. CYMBALTA [Suspect]
     Indication: MAJOR DEPRESSION
     Dosage: SEE IMAGE
     Dates: start: 20050323, end: 20050330
  2. CYMBALTA [Suspect]
     Indication: MAJOR DEPRESSION
     Dosage: SEE IMAGE
     Dates: start: 20050330
  3. AMBIEN [Concomitant]
  4. FLORINEF [Concomitant]
  5. PRENATAL VITAMINS(ASCORBIC ACID, BIOTIN, MINERALS NOS., NICOTINIC ACID [Concomitant]

REACTIONS (2)
  - DRUG EXPOSURE DURING PREGNANCY [None]
  - SYNCOPE [None]
